FAERS Safety Report 6660671-6 (Version None)
Quarter: 2010Q1

REPORT INFORMATION
  Report Type: 
  Country: None (occurrence: None)
  Receive Date: 20100331
  Receipt Date: 20100212
  Transmission Date: 20100710
  Serious: No
  Sender: FDA-Public Use
  Company Number: US-JNJFOC-20100206569

PATIENT
  Sex: Male
  Weight: 72.58 kg

DRUGS (1)
  1. INVEGA [Suspect]
     Indication: SCHIZOPHRENIA
     Route: 048

REACTIONS (5)
  - DROOLING [None]
  - SWOLLEN TONGUE [None]
  - TARDIVE DYSKINESIA [None]
  - TONGUE PARALYSIS [None]
  - TRISMUS [None]
